FAERS Safety Report 20853652 (Version 1)
Quarter: 2022Q2

REPORT INFORMATION
  Report Type: Spontaneous
  Country: US (occurrence: US)
  Receive Date: 20220520
  Receipt Date: 20220520
  Transmission Date: 20220721
  Serious: Yes (Hospitalization)
  Sender: FDA-Public Use
  Company Number: US-MYLANLABS-2022M1037117

PATIENT
  Age: 31 Year
  Sex: Female

DRUGS (2)
  1. AMIODARONE [Suspect]
     Active Substance: AMIODARONE
     Indication: Atrial flutter
     Dosage: 150 MILLIGRAM
     Route: 040
  2. AMIODARONE [Suspect]
     Active Substance: AMIODARONE
     Dosage: 1 MILLIGRAM, QMINUTE FOR 5 HOURS AND 33 MINUTES
     Route: 042

REACTIONS (4)
  - Pneumonia aspiration [Unknown]
  - Lung consolidation [Unknown]
  - Sepsis [Unknown]
  - Acute hepatic failure [Recovered/Resolved]
